FAERS Safety Report 8203874-1 (Version None)
Quarter: 2012Q1

REPORT INFORMATION
  Report Type: 
  Country: None (occurrence: None)
  Receive Date: 20120308
  Receipt Date: 20120229
  Transmission Date: 20120608
  Serious: Yes (Other)
  Sender: FDA-Public Use
  Company Number: B0785864A

PATIENT
  Sex: Female

DRUGS (2)
  1. LAPATINIB [Suspect]
     Indication: BREAST CANCER
     Dosage: 1250 MG / PER DAY / ORAL
     Route: 048
  2. VINORELBINE TARTRATE [Suspect]
     Indication: BREAST CANCER
     Dosage: 22.5 MG/M2 / INTRAVENOUS
     Route: 042

REACTIONS (2)
  - NEUTROPENIA [None]
  - TOXICITY TO VARIOUS AGENTS [None]
